FAERS Safety Report 16928934 (Version 1)
Quarter: 2019Q4

REPORT INFORMATION
  Report Type: Spontaneous
  Country: US (occurrence: US)
  Receive Date: 20191017
  Receipt Date: 20191017
  Transmission Date: 20200122
  Serious: No
  Sender: FDA-Public Use
  Company Number: US-ADAREPHARM-2019-US-000009

PATIENT
  Sex: Male

DRUGS (1)
  1. KCL [Suspect]
     Active Substance: POTASSIUM CHLORIDE

REACTIONS (2)
  - Product complaint [Unknown]
  - Product use complaint [Unknown]
